FAERS Safety Report 9469964 (Version 2)
Quarter: 2013Q3

REPORT INFORMATION
  Report Type: Spontaneous
  Country: US (occurrence: US)
  Receive Date: 20130822
  Receipt Date: 20130825
  Transmission Date: 20140515
  Serious: No
  Sender: FDA-Public Use
  Company Number: US-009507513-1308USA007756

PATIENT
  Age: 63 Year
  Sex: Female

DRUGS (5)
  1. DULERA [Suspect]
     Indication: ASTHMA
     Dosage: TWO PUFFS IN THE MORNING AND TWO PUFFS IN THE EVENING
     Route: 055
     Dates: start: 201306
  2. DULERA [Suspect]
     Dosage: TWO PUFFS IN THE MORNING AND TWO PUFFS IN THE EVENING
     Route: 055
     Dates: start: 201306
  3. ALBUTEROL [Concomitant]
     Dosage: UNK
  4. PREMARIN [Concomitant]
     Dosage: UNK
  5. SYNTHYROID [Concomitant]
     Dosage: UNK

REACTIONS (3)
  - Dyspnoea [Not Recovered/Not Resolved]
  - Drug dose omission [Unknown]
  - Product quality issue [Unknown]
